FAERS Safety Report 16059464 (Version 1)
Quarter: 2019Q1

REPORT INFORMATION
  Report Type: Spontaneous
  Country: US (occurrence: US)
  Receive Date: 20190311
  Receipt Date: 20190311
  Transmission Date: 20190418
  Serious: No
  Sender: FDA-Public Use
  Company Number: US-GALDERMA-US18006563

PATIENT
  Age: 55 Year
  Sex: Female

DRUGS (4)
  1. TRI-LUMA [Suspect]
     Active Substance: FLUOCINOLONE ACETONIDE\HYDROQUINONE\TRETINOIN
     Indication: PIGMENTATION DISORDER
     Route: 061
     Dates: start: 20180322, end: 20180411
  2. VITAMIN D [Concomitant]
     Active Substance: CHOLECALCIFEROL
  3. CALTRATE [Concomitant]
     Active Substance: CALCIUM CARBONATE
  4. NEUTROGENA SPF30 [Concomitant]

REACTIONS (2)
  - Product use in unapproved indication [Recovered/Resolved]
  - Condition aggravated [Recovered/Resolved]
